FAERS Safety Report 10209645 (Version 1)
Quarter: 2014Q2

REPORT INFORMATION
  Report Type: Spontaneous
  Country: US (occurrence: US)
  Receive Date: 20140602
  Receipt Date: 20140602
  Transmission Date: 20141212
  Serious: Yes (Other)
  Sender: FDA-Public Use
  Company Number: US-BIOGENIDEC-2014BI050798

PATIENT
  Sex: Female

DRUGS (2)
  1. AVONEX [Suspect]
     Indication: MULTIPLE SCLEROSIS
     Route: 030
  2. AVONEX [Suspect]
     Indication: MULTIPLE SCLEROSIS
     Route: 030
     Dates: start: 20040401, end: 20041001

REACTIONS (8)
  - Appendicectomy [Recovered/Resolved]
  - Neck mass [Recovered/Resolved]
  - Post procedural oedema [Not Recovered/Not Resolved]
  - Post procedural cellulitis [Recovered/Resolved with Sequelae]
  - Post procedural complication [Not Recovered/Not Resolved]
  - Procedural headache [Recovered/Resolved]
  - Poor venous access [Unknown]
  - Vomiting [Recovered/Resolved]
